FAERS Safety Report 13978602 (Version 1)
Quarter: 2017Q3

REPORT INFORMATION
  Report Type: Spontaneous
  Country: US (occurrence: US)
  Receive Date: 20170915
  Receipt Date: 20170915
  Transmission Date: 20171128
  Serious: Yes (Other)
  Sender: FDA-Public Use
  Company Number: US-LPDUSPRD-20170934

PATIENT
  Age: 36 Year
  Sex: Female
  Weight: 102 kg

DRUGS (1)
  1. INJECTAFER [Suspect]
     Active Substance: FERRIC CARBOXYMALTOSE
     Dosage: 750 MG
     Route: 042
     Dates: start: 20170622, end: 20170622

REACTIONS (3)
  - Anaphylactoid reaction [Unknown]
  - Swollen tongue [Unknown]
  - Throat irritation [Unknown]

NARRATIVE: CASE EVENT DATE: 20170622
